FAERS Safety Report 7089074-X (Version None)
Quarter: 2010Q4

REPORT INFORMATION
  Report Type: 
  Country: None (occurrence: None)
  Receive Date: 20101108
  Receipt Date: 20101028
  Transmission Date: 20110411
  Serious: Yes (Disabling)
  Sender: FDA-Public Use
  Company Number: B0682844A

PATIENT
  Age: 56 Year
  Sex: Male

DRUGS (2)
  1. NEOTIGASON [Suspect]
     Indication: LICHEN PLANUS
     Dosage: 25MG PER DAY
     Route: 048
  2. LISINOPRIL [Concomitant]

REACTIONS (3)
  - EXTRASKELETAL OSSIFICATION [None]
  - PAIN IN EXTREMITY [None]
  - TENDONITIS [None]
